FAERS Safety Report 23584671 (Version 1)
Quarter: 2024Q1

REPORT INFORMATION
  Report Type: Spontaneous
  Country: CA (occurrence: CA)
  Receive Date: 20240301
  Receipt Date: 20240301
  Transmission Date: 20240409
  Serious: Yes (Disabling)
  Sender: FDA-Public Use
  Company Number: CA-BEH-2024168978

PATIENT
  Age: 46 Year
  Sex: Female
  Weight: 98 kg

DRUGS (4)
  1. PRIVIGEN [Suspect]
     Active Substance: HUMAN IMMUNOGLOBULIN G
     Indication: Platelet count decreased
     Dosage: UNK
     Route: 042
  2. FERROUS SULFATE [Concomitant]
     Active Substance: FERROUS SULFATE
  3. LUPRON [Concomitant]
     Active Substance: LEUPROLIDE ACETATE
     Dosage: UNK
     Route: 058
  4. TRANEXAMIC ACID [Concomitant]
     Active Substance: TRANEXAMIC ACID

REACTIONS (8)
  - Allergy to immunoglobulin therapy [Recovered/Resolved]
  - Brachiocephalic vein thrombosis [Recovered/Resolved]
  - Chills [Recovered/Resolved]
  - Embolism [Recovered/Resolved]
  - Hypertension [Recovered/Resolved]
  - Tremor [Recovered/Resolved]
  - No adverse event [Unknown]
  - Off label use [Unknown]
